FAERS Safety Report 7167291-8 (Version None)
Quarter: 2010Q4

REPORT INFORMATION
  Report Type: 
  Country: None (occurrence: None)
  Receive Date: 20101213
  Receipt Date: 20101213
  Transmission Date: 20110411
  Serious: No
  Sender: FDA-Public Use
  Company Number: None

PATIENT
  Sex: Female

DRUGS (1)
  1. ACTEMRA [Suspect]
     Indication: GASTROINTESTINAL DISORDER
     Dosage: 80 MG/4ML ;  260MG IV
     Route: 042
     Dates: start: 20101119

REACTIONS (2)
  - GINGIVITIS [None]
  - MOUTH ULCERATION [None]
